FAERS Safety Report 11633267 (Version 2)
Quarter: 2015Q4

REPORT INFORMATION
  Report Type: Spontaneous
  Country: PL (occurrence: PL)
  Receive Date: 20151015
  Receipt Date: 20151029
  Transmission Date: 20160304
  Serious: Yes (Other)
  Sender: FDA-Public Use
  Company Number: PL-009507513-1510POL005282

PATIENT
  Age: 65 Year
  Sex: Female

DRUGS (3)
  1. DIPROPHOS [Suspect]
     Active Substance: BECLOMETHASONE DIPROPIONATE\BETAMETHASONE SODIUM PHOSPHATE
     Dosage: STRENGTH: (6.43 MG + 2.63 MG)/ ML; UNKNOWN
     Route: 030
     Dates: start: 20150323, end: 20150323
  2. LETROX [Concomitant]
     Indication: THYROID DISORDER
     Dosage: UNKNOWN
  3. LIDOCAINE. [Concomitant]
     Active Substance: LIDOCAINE
     Dosage: UNKNOWN
     Route: 030
     Dates: start: 20150323, end: 20150323

REACTIONS (4)
  - Shock [Recovered/Resolved]
  - Visual field defect [Recovered/Resolved]
  - Chest pain [Recovered/Resolved]
  - Dyspnoea [Unknown]

NARRATIVE: CASE EVENT DATE: 2015
